FAERS Safety Report 5944308-7 (Version None)
Quarter: 2008Q4

REPORT INFORMATION
  Report Type: 
  Country: None (occurrence: None)
  Receive Date: 20081105
  Receipt Date: 20081021
  Transmission Date: 20090506
  Serious: Yes (Other)
  Sender: FDA-Public Use
  Company Number: 2008S1019055

PATIENT
  Age: 79 Year
  Sex: Female
  Weight: 67.2 kg

DRUGS (8)
  1. LEFLUNOMIDE [Suspect]
     Dates: start: 20000101, end: 20071028
  2. NAPROXEN [Suspect]
     Dates: end: 20080410
  3. LEVOTHYROXINE SODIUM [Suspect]
  4. ETANERCEPT [Suspect]
     Indication: RHEUMATOID ARTHRITIS
     Dosage: 50 MG; WEEKLY; SUBCUTANEOUS
     Route: 058
     Dates: start: 20010401
  5. IIBANDRONIC ACID [Concomitant]
  6. TRIAMTEREN/HYDROCHLOOTTHIAZIDE [Concomitant]
  7. MULTI-VITAMINS [Concomitant]
  8. INHALANT [Concomitant]

REACTIONS (8)
  - CHRONIC OBSTRUCTIVE PULMONARY DISEASE [None]
  - DYSPHAGIA [None]
  - HYPERTHYROIDISM [None]
  - LUNG NEOPLASM [None]
  - MYASTHENIA GRAVIS [None]
  - OSTEOPOROSIS [None]
  - TRANSIENT ISCHAEMIC ATTACK [None]
  - WEIGHT DECREASED [None]
